FAERS Safety Report 24789688 (Version 1)
Quarter: 2024Q4

REPORT INFORMATION
  Report Type: Report from Study
  Country: US (occurrence: US)
  Receive Date: 20241230
  Receipt Date: 20241230
  Transmission Date: 20250114
  Serious: Yes (Hospitalization, Other)
  Sender: PFIZER
  Company Number: US-PFIZER INC-PV202400167546

PATIENT
  Age: 68 Year
  Sex: Male

DRUGS (2)
  1. INLYTA [Suspect]
     Active Substance: AXITINIB
     Indication: Renal cancer
     Dosage: 5MG TWICE DAILY
     Dates: start: 202411, end: 202412
  2. INLYTA [Suspect]
     Active Substance: AXITINIB
     Dosage: 5MG ONCE DAILY EVERY OTHER DAY
     Route: 048
     Dates: start: 202412

REACTIONS (5)
  - Pulmonary thrombosis [Unknown]
  - Heart rate increased [Unknown]
  - Dizziness [Recovering/Resolving]
  - Blindness [Recovered/Resolved]
  - Off label use [Unknown]

NARRATIVE: CASE EVENT DATE: 20240101
